FAERS Safety Report 7244242-9 (Version None)
Quarter: 2011Q1

REPORT INFORMATION
  Report Type: 
  Country: None (occurrence: None)
  Receive Date: 20110125
  Receipt Date: 20110121
  Transmission Date: 20110831
  Serious: Yes (Other)
  Sender: FDA-Public Use
  Company Number: JP-ABBOTT-08P-087-0444538-00

PATIENT
  Sex: Male

DRUGS (11)
  1. TRICOR [Suspect]
     Indication: HYPERTRIGLYCERIDAEMIA
     Route: 048
     Dates: start: 20050602, end: 20050629
  2. BLOPRESS [Suspect]
     Route: 048
     Dates: start: 20061109, end: 20070307
  3. URALYT [Concomitant]
     Indication: HYPERURICAEMIA
     Dosage: 4 TAB, (2 TAB,. 2 IN 1 D)
     Route: 048
     Dates: start: 20040715, end: 20061012
  4. BEZAFIBRATE [Concomitant]
     Indication: PRODUCT USED FOR UNKNOWN INDICATION
     Route: 048
     Dates: start: 20040415, end: 20040908
  5. TRICOR [Suspect]
     Route: 048
     Dates: start: 20050630, end: 20070131
  6. TRICOR [Suspect]
     Dosage: 200MG DAILY (100MG, 2 IN 1 D)
     Route: 048
     Dates: start: 20070201, end: 20080402
  7. BLOPRESS [Suspect]
     Route: 048
     Dates: start: 20050303, end: 20061108
  8. TAKEPRON [Concomitant]
     Indication: REFLUX OESOPHAGITIS
     Route: 048
     Dates: start: 20060427, end: 20060601
  9. BLOPRESS [Suspect]
     Indication: HYPERTENSION
     Route: 048
     Dates: start: 20040715, end: 20050302
  10. TEGRETOL [Concomitant]
     Indication: TRIGEMINAL NEURALGIA
     Dosage: 400MG (200MG, 2 IN 1 D)
     Route: 048
     Dates: start: 20050303, end: 20050811
  11. FENOFIBRATE [Concomitant]
     Indication: HYPERTRIGLYCERIDAEMIA
     Route: 048
     Dates: start: 20040909, end: 20050601

REACTIONS (2)
  - INTERSTITIAL LUNG DISEASE [None]
  - NASOPHARYNGITIS [None]
